FAERS Safety Report 16425549 (Version 1)
Quarter: 2019Q2

REPORT INFORMATION
  Report Type: Spontaneous
  Country: US (occurrence: US)
  Receive Date: 20190613
  Receipt Date: 20190613
  Transmission Date: 20190711
  Serious: No
  Sender: FDA-Public Use
  Company Number: US-PFIZER INC-2019247314

PATIENT
  Sex: Male

DRUGS (1)
  1. ADVIL [Suspect]
     Active Substance: IBUPROFEN
     Indication: BACK PAIN
     Dosage: UNK, (NO MORE THAN TWO PER DAY )
     Dates: start: 201906

REACTIONS (2)
  - Therapeutic product effect incomplete [Unknown]
  - Product use complaint [Unknown]

NARRATIVE: CASE EVENT DATE: 201906
